FAERS Safety Report 13679544 (Version 2)
Quarter: 2017Q2

REPORT INFORMATION
  Report Type: Spontaneous
  Country: IT (occurrence: IT)
  Receive Date: 20170622
  Receipt Date: 20170623
  Transmission Date: 20170830
  Serious: Yes (Hospitalization)
  Sender: FDA-Public Use
  Company Number: PHHY2017IT087601

PATIENT
  Age: 44 Year
  Sex: Male

DRUGS (5)
  1. BETAMETHASONE. [Suspect]
     Active Substance: BETAMETHASONE
     Indication: INFLAMMATION
     Dosage: 4 MG, UNK
     Route: 030
  2. THIOCOLCHICOSIDE [Interacting]
     Active Substance: THIOCOLCHICOSIDE
     Indication: INFLAMMATION
     Dosage: 4 MG, UNK
     Route: 030
  3. KETOROLAC [Interacting]
     Active Substance: KETOROLAC\KETOROLAC TROMETHAMINE
     Indication: INFLAMMATION
     Dosage: 30 MG, UNK
     Route: 030
  4. NIMESULIDE [Interacting]
     Active Substance: NIMESULIDE
     Indication: INFLAMMATION
     Dosage: 400 MG, UNK
     Route: 048
  5. DICLOFENAC [Interacting]
     Active Substance: DICLOFENAC
     Indication: INFLAMMATION
     Dosage: 75 MG, UNK
     Route: 030

REACTIONS (6)
  - Anaemia [Recovered/Resolved]
  - Melaena [Recovered/Resolved]
  - Gastritis erosive [Recovered/Resolved]
  - Rectal haemorrhage [Recovered/Resolved]
  - Drug interaction [Unknown]
  - Erosive duodenitis [Recovered/Resolved]
